FAERS Safety Report 9798541 (Version 2)
Quarter: 2014Q1

REPORT INFORMATION
  Report Type: Spontaneous
  Country: CA (occurrence: None)
  Receive Date: 20131231
  Receipt Date: 20140107
  Transmission Date: 20141002
  Serious: Yes (Other)
  Sender: FDA-Public Use
  Company Number: AUR-APL-2013-10857

PATIENT
  Age: 60 Year
  Sex: Male

DRUGS (4)
  1. LEVETIRACETAM [Suspect]
     Indication: EPILEPSY
     Dosage: 3000 MG (1500 MG, 2 IN 1 D)
     Route: 048
  2. PHENYTOIN [Suspect]
     Indication: EPILEPSY
     Dosage: 200 MG IN THE MORNING, 250 MG AT BEDTIME
  3. PROPOFOL [Suspect]
     Indication: EPILEPSY
     Dosage: REPEATED BOLUSES OF 30 MG AND AN INFUSION INCREASED TO 50 UG/KG/MIN
  4. MIDAZOLAM [Suspect]
     Indication: EPILEPSY
     Dosage: REPEATED BOLUSES OF 5MG  AND AN INFUSION, WHICH WAS PROGRESSIVELY INCREASED TO 30MG PER HR, OCULAR USE

REACTIONS (12)
  - Pneumonia [None]
  - Anticonvulsant drug level above therapeutic [None]
  - Ataxia [None]
  - Nystagmus [None]
  - Anticonvulsant drug level below therapeutic [None]
  - Coma [None]
  - Oxygen saturation decreased [None]
  - Asthenia [None]
  - Asthenia [None]
  - Status epilepticus [None]
  - No therapeutic response [None]
  - Convulsion [None]
